FAERS Safety Report 9773259 (Version 3)
Quarter: 2013Q4

REPORT INFORMATION
  Report Type: Spontaneous
  Country: JP (occurrence: JP)
  Receive Date: 20131219
  Receipt Date: 20131226
  Transmission Date: 20140711
  Serious: Yes (Other)
  Sender: FDA-Public Use
  Company Number: JP-ASTRAZENECA-2013SE87641

PATIENT
  Age: 60 Year
  Sex: Male
  Weight: 73 kg

DRUGS (4)
  1. CRESTOR [Suspect]
     Indication: HYPERCHOLESTEROLAEMIA
     Route: 048
     Dates: start: 20110407, end: 20130822
  2. CALBLOCK [Concomitant]
     Indication: HYPERTENSION
     Route: 048
     Dates: start: 20101215
  3. BLOPRESS [Concomitant]
     Indication: HYPERTENSION
     Route: 048
     Dates: start: 20101215
  4. GASTER D [Concomitant]
     Indication: GASTRITIS
     Route: 048
     Dates: start: 20101215

REACTIONS (2)
  - Haemoglobin decreased [Recovered/Resolved]
  - Anaemia [Recovered/Resolved]
